FAERS Safety Report 18097218 (Version 1)
Quarter: 2020Q3

REPORT INFORMATION
  Report Type: Report from Study
  Country: AU (occurrence: AU)
  Receive Date: 20200731
  Receipt Date: 20200731
  Transmission Date: 20201103
  Serious: Yes (Other)
  Sender: FDA-Public Use
  Company Number: AU-REGENERON PHARMACEUTICALS, INC.-2020-53362

PATIENT

DRUGS (2)
  1. EYLEA [Suspect]
     Active Substance: AFLIBERCEPT
     Dosage: UNKNOWN DOSE, FREQUENCY AND TOTAL NUMBER OF INJECTIONSIN LEFT EYE
     Route: 031
     Dates: start: 202004
  2. EYLEA [Suspect]
     Active Substance: AFLIBERCEPT
     Indication: NEOVASCULAR AGE-RELATED MACULAR DEGENERATION
     Dosage: UNKNOWN DOSE, EVERY 4?5 WEEKS IN RIGHT EYE, UNKNOWN TOTAL NUMBER OF INJECTIONS
     Route: 031
     Dates: start: 201912

REACTIONS (2)
  - Vision blurred [Not Recovered/Not Resolved]
  - Benign neoplasm of retina [Unknown]

NARRATIVE: CASE EVENT DATE: 20200707
